FAERS Safety Report 5346146-5 (Version None)
Quarter: 2007Q2

REPORT INFORMATION
  Report Type: 
  Country: None (occurrence: None)
  Receive Date: 20070605
  Receipt Date: 20070525
  Transmission Date: 20071010
  Serious: Yes (Hospitalization)
  Sender: FDA-Public Use
  Company Number: FR-JNJFOC-20070506044

PATIENT
  Age: 82 Year
  Sex: Male

DRUGS (3)
  1. TAVANIC [Suspect]
     Indication: BRONCHITIS
     Route: 048
  2. PREVISCAN [Interacting]
     Indication: CONDUCTION DISORDER
     Route: 048
  3. CORDARONE [Suspect]
     Indication: CONDUCTION DISORDER
     Route: 048

REACTIONS (2)
  - DRUG INTERACTION [None]
  - MELAENA [None]
